FAERS Safety Report 8089664-1 (Version None)
Quarter: 2012Q1

REPORT INFORMATION
  Report Type: 
  Country: None (occurrence: None)
  Receive Date: 20120128
  Receipt Date: 20110708
  Transmission Date: 20120608
  Serious: No
  Sender: FDA-Public Use
  Company Number: US-ABBOTT-11P-163-0730014-00

PATIENT
  Sex: Female
  Weight: 69.462 kg

DRUGS (26)
  1. FLONASE [Concomitant]
     Indication: ALLERGIC SINUSITIS
  2. CLONAZEPAM [Concomitant]
     Indication: PANIC ATTACK
  3. CLONAZEPAM [Concomitant]
     Indication: ANXIETY
  4. HUMIRA [Suspect]
     Indication: RHEUMATOID ARTHRITIS
     Route: 058
     Dates: start: 20110301, end: 20110301
  5. PREDNISONE TAB [Concomitant]
     Indication: RHEUMATOID ARTHRITIS
  6. TRILIPIX [Concomitant]
     Indication: BLOOD CHOLESTEROL
  7. OMEPRAZOLE [Concomitant]
     Indication: GASTROOESOPHAGEAL REFLUX DISEASE
  8. ZETIA [Concomitant]
     Indication: BLOOD CHOLESTEROL INCREASED
  9. ASPIRIN [Concomitant]
     Indication: CARDIOVASCULAR EVENT PROPHYLAXIS
  10. WELCHOL [Concomitant]
     Indication: BLOOD CHOLESTEROL
  11. ARTHRI-D 3 [Concomitant]
     Indication: SUPPLEMENTATION THERAPY
  12. LYRICA [Concomitant]
     Indication: FIBROMYALGIA
  13. PAROXETINE [Concomitant]
     Indication: DEPRESSION
  14. ZOLPIDEM [Concomitant]
     Indication: INSOMNIA
  15. CALCIUM WITH VITAMIN D [Concomitant]
     Indication: SUPPLEMENTATION THERAPY
  16. KLONOPIN [Concomitant]
     Indication: PRODUCT USED FOR UNKNOWN INDICATION
  17. OXYMORPHONE [Concomitant]
     Indication: PAIN
     Dosage: ER
  18. TRILIPIX [Concomitant]
     Indication: BLOOD TRIGLYCERIDES INCREASED
  19. HUMIRA [Suspect]
     Route: 058
     Dates: start: 20110401, end: 20110401
  20. HUMIRA [Suspect]
     Route: 058
     Dates: start: 20110501, end: 20110501
  21. OPANA ER [Concomitant]
     Indication: PAIN
  22. ACTIQ [Concomitant]
     Indication: PAIN
     Dosage: DAILY AS NEEDED
  23. CLONAZEPAM [Concomitant]
     Indication: PAIN
  24. HUMIRA [Suspect]
     Route: 058
     Dates: start: 20110708
  25. SINGULAIR [Concomitant]
     Indication: ASTHMA
  26. LOVAZA [Concomitant]
     Indication: PRODUCT USED FOR UNKNOWN INDICATION

REACTIONS (7)
  - NEOPLASM [None]
  - MOUTH ULCERATION [None]
  - PYREXIA [None]
  - FATIGUE [None]
  - INJECTION SITE PAIN [None]
  - MALAISE [None]
  - OROPHARYNGEAL BLISTERING [None]
